FAERS Safety Report 5070532-4 (Version None)
Quarter: 2006Q3

REPORT INFORMATION
  Report Type: 
  Country: None (occurrence: None)
  Receive Date: 20060804
  Receipt Date: 20060728
  Transmission Date: 20061208
  Serious: Yes (Hospitalization)
  Sender: FDA-Public Use
  Company Number: PHNU2006DE02662

PATIENT
  Age: 61 Year
  Sex: Male

DRUGS (5)
  1. TEGRETOL [Suspect]
     Indication: EPILEPSY
     Dosage: 400 MG, BID
     Route: 048
     Dates: start: 19840101, end: 20060101
  2. TEGRETOL [Suspect]
     Dosage: 400 MG, BID
     Route: 048
     Dates: start: 20060701
  3. VOLTAREN [Suspect]
     Indication: PAIN
     Dosage: 1 DF, BID
     Route: 048
     Dates: start: 20060101, end: 20060701
  4. KEPPRA [Suspect]
     Indication: EPILEPSY
     Dates: start: 20060701
  5. TAVOR [Concomitant]
     Indication: EPILEPSY
     Dosage: UNK, PRN

REACTIONS (9)
  - ANTICONVULSANT DRUG LEVEL BELOW THERAPEUTIC [None]
  - CIRCUMSTANCE OR INFORMATION CAPABLE OF LEADING TO MEDICATION ERROR [None]
  - DIZZINESS [None]
  - GRAND MAL CONVULSION [None]
  - INGUINAL HERNIA, OBSTRUCTIVE [None]
  - PAIN [None]
  - SURGERY [None]
  - TINNITUS [None]
  - VISUAL DISTURBANCE [None]
